FAERS Safety Report 21195006 (Version 1)
Quarter: 2022Q3

REPORT INFORMATION
  Report Type: Spontaneous
  Country: FR (occurrence: FR)
  Receive Date: 20220810
  Receipt Date: 20220810
  Transmission Date: 20221026
  Serious: Yes (Life-Threatening, Other)
  Sender: FDA-Public Use
  Company Number: None

PATIENT

DRUGS (17)
  1. ALBUTEROL [Suspect]
     Active Substance: ALBUTEROL
     Indication: Asthma
     Dosage: 100 ?G
     Route: 048
     Dates: end: 20220520
  2. ANETHOLTRITHION [Suspect]
     Active Substance: ANETHOLTRITHION
     Indication: Product used for unknown indication
     Dosage: 150 MG, QD (25 MG - 2 TABLETS MORNING NOON EVENING)
     Route: 048
     Dates: end: 20220520
  3. ZUCLOPENTHIXOL DECANOATE [Suspect]
     Active Substance: ZUCLOPENTHIXOL DECANOATE
     Indication: Schizophrenia
     Dosage: 1 DAY/MONTH
     Route: 030
     Dates: end: 20220520
  4. ROSUVASTATIN CALCIUM [Suspect]
     Active Substance: ROSUVASTATIN CALCIUM
     Indication: Hypercholesterolaemia
     Dosage: 20 MG, QD (EVENING)
     Route: 048
     Dates: end: 20220520
  5. LOXAPINE [Suspect]
     Active Substance: LOXAPINE
     Indication: Schizophrenia
     Dosage: 100 MG, QD (AT BEDTIME)
     Route: 048
     Dates: end: 20220520
  6. SERETIDE [Suspect]
     Active Substance: FLUTICASONE PROPIONATE\SALMETEROL XINAFOATE
     Indication: Asthma
     Dosage: 4 DF, QD (2 INHALATIONS MORNING AND EVENING)
     Route: 049
     Dates: end: 20220520
  7. FOLIC ACID [Suspect]
     Active Substance: FOLIC ACID
     Indication: Product used for unknown indication
     Dosage: 10 MG, QD (5 MG MORNING EVENING)
     Route: 048
     Dates: end: 20220520
  8. LORMETAZEPAM [Suspect]
     Active Substance: LORMETAZEPAM
     Indication: Product used for unknown indication
     Dosage: 2 MG, QD (AT BEDTIME)
     Route: 048
     Dates: end: 20220520
  9. QUETIAPINE [Suspect]
     Active Substance: QUETIAPINE
     Indication: Schizophrenia
     Dosage: 300 MG, QD (AT BEDTIME)
     Route: 048
     Dates: end: 20220520
  10. DIOSMIN\HESPERIDIN [Suspect]
     Active Substance: DIOSMIN\HESPERIDIN
     Indication: Product used for unknown indication
     Dosage: 1000 MG, QD (500 MG MORNING AND EVENING)
     Route: 048
     Dates: end: 20220520
  11. VALPROATE SODIUM [Suspect]
     Active Substance: VALPROATE SODIUM
     Indication: Epilepsy
     Dosage: 2 G, QD (1G MORNING AND EVENING)
     Route: 048
     Dates: end: 20220520
  12. DISULFIRAM [Suspect]
     Active Substance: DISULFIRAM
     Indication: Alcoholism
     Dosage: 500 MG, QD (MATIN)
     Route: 048
     Dates: end: 20220520
  13. PROPRANOLOL HYDROCHLORIDE [Suspect]
     Active Substance: PROPRANOLOL HYDROCHLORIDE
     Indication: Hypertension
     Dosage: 40 MG, QD (MATIN)
     Route: 048
     Dates: end: 20220520
  14. LOXAPINE [Suspect]
     Active Substance: LOXAPINE
     Indication: Schizophrenia
     Dosage: 50 MG, QD (25 MG MORNING AND NOON)
     Route: 048
     Dates: end: 20220520
  15. TRIHEXYPHENIDYL HYDROCHLORIDE [Suspect]
     Active Substance: TRIHEXYPHENIDYL HYDROCHLORIDE
     Indication: Parkinsonism
     Dosage: 10 MG, QD (5 MG MORNING AND EVENING)
     Route: 048
     Dates: end: 20220520
  16. ESOMEPRAZOLE MAGNESIUM [Suspect]
     Active Substance: ESOMEPRAZOLE MAGNESIUM
     Indication: Gastroduodenal ulcer
     Dosage: 40 MG, QD (EVENING)
     Route: 048
     Dates: end: 20220520
  17. OXAZEPAM [Concomitant]
     Active Substance: OXAZEPAM
     Indication: Alcohol withdrawal syndrome
     Dosage: 300 MG, QD (2 TABLETS OF 50MG MORNING NOON AND EVENING)
     Route: 048
     Dates: end: 20220520

REACTIONS (1)
  - Hypovolaemic shock [Recovering/Resolving]

NARRATIVE: CASE EVENT DATE: 20220520
